FAERS Safety Report 4513213-5 (Version None)
Quarter: 2004Q4

REPORT INFORMATION
  Report Type: 
  Country: None (occurrence: None)
  Receive Date: 20041124
  Receipt Date: 20041109
  Transmission Date: 20050328
  Serious: Yes (Hospitalization, Other)
  Sender: FDA-Public Use
  Company Number: USA041081912

PATIENT
  Age: 86 Year
  Sex: Female
  Weight: 45 kg

DRUGS (5)
  1. FORTEO [Suspect]
     Indication: OSTEOPOROSIS
     Dates: start: 20040701, end: 20041001
  2. SYNTHROID [Concomitant]
  3. METOPROLOL [Concomitant]
  4. DIGOXIN [Concomitant]
  5. PLAVIX [Concomitant]

REACTIONS (7)
  - ABASIA [None]
  - ANOREXIA [None]
  - ASTHENIA [None]
  - DYSGEUSIA [None]
  - HAEMORRHAGE [None]
  - MELAENA [None]
  - WEIGHT DECREASED [None]
